FAERS Safety Report 6142151-X (Version None)
Quarter: 2009Q2

REPORT INFORMATION
  Report Type: 
  Country: None (occurrence: None)
  Receive Date: 20090402
  Receipt Date: 20090330
  Transmission Date: 20091009
  Serious: Yes (Hospitalization)
  Sender: FDA-Public Use
  Company Number: FR-MERCK-0804FRA00011

PATIENT
  Age: 53 Year
  Sex: Female

DRUGS (2)
  1. COSOPT [Suspect]
     Indication: GLAUCOMA
     Route: 047
  2. LATANOPROST [Suspect]
     Indication: GLAUCOMA
     Route: 047
     Dates: start: 20041201

REACTIONS (3)
  - CHOROID MELANOMA [None]
  - CONDITION AGGRAVATED [None]
  - EYE PAIN [None]
